FAERS Safety Report 7955067-0 (Version None)
Quarter: 2011Q4

REPORT INFORMATION
  Report Type: 
  Country: None (occurrence: None)
  Receive Date: 20111202
  Receipt Date: 20111125
  Transmission Date: 20120403
  Serious: Yes (Hospitalization, Other)
  Sender: FDA-Public Use
  Company Number: US-BAYER-2011-000119

PATIENT
  Age: 47 Year
  Sex: Female
  Weight: 68.481 kg

DRUGS (8)
  1. PROVIGIL [Concomitant]
     Indication: ARTHRALGIA
     Dosage: 100 MG, UNK
     Dates: start: 20080401, end: 20100601
  2. AMOXICILLIN [Concomitant]
  3. DICLOFENAC [Concomitant]
     Indication: ARTHRALGIA
     Dosage: UNK
     Dates: start: 20070123, end: 20090426
  4. XANAX [Concomitant]
     Indication: ANXIETY
     Dosage: UNK
     Dates: start: 20070501, end: 20100701
  5. CITALOPRAM HYDROBROMIDE [Concomitant]
     Indication: DEPRESSION
     Dosage: UNK
     Dates: start: 20070501, end: 20100701
  6. YAZ [Suspect]
     Indication: PREMENSTRUAL SYNDROME
     Dosage: UNK
     Dates: start: 20070312, end: 20091228
  7. CELEXA [Concomitant]
     Indication: DEPRESSION
     Dosage: UNK
     Dates: start: 20070101, end: 20111001
  8. SKELAXIN [Concomitant]
     Dosage: 800 MG, UNK

REACTIONS (7)
  - GALLBLADDER DISORDER [None]
  - CHOLECYSTITIS CHRONIC [None]
  - ANXIETY [None]
  - GALLBLADDER PAIN [None]
  - POST CHOLECYSTECTOMY SYNDROME [None]
  - POST-TRAUMATIC STRESS DISORDER [None]
  - GASTROINTESTINAL DISORDER [None]
